FAERS Safety Report 15479903 (Version 1)
Quarter: 2018Q4

REPORT INFORMATION
  Report Type: Spontaneous
  Country: ES (occurrence: ES)
  Receive Date: 20181009
  Receipt Date: 20181009
  Transmission Date: 20190205
  Serious: Yes (Other)
  Sender: FDA-Public Use
  Company Number: ES-MYLANLABS-2018M1074390

PATIENT
  Age: 43 Year
  Sex: Male

DRUGS (3)
  1. METHOTREXATE. [Suspect]
     Active Substance: METHOTREXATE
     Indication: AXIAL SPONDYLOARTHRITIS
     Dosage: UNK
  2. METHOTREXATE. [Suspect]
     Active Substance: METHOTREXATE
     Indication: DISEASE RECURRENCE
     Dosage: UNK
  3. METHOTREXATE. [Suspect]
     Active Substance: METHOTREXATE
     Indication: IRIDOCYCLITIS
     Dosage: UNK
     Route: 065

REACTIONS (1)
  - Drug resistance [Unknown]
